FAERS Safety Report 9439265 (Version 5)
Quarter: 2014Q3

REPORT INFORMATION
  Report Type: Report from Study
  Country: DE (occurrence: DE)
  Receive Date: 20130804
  Receipt Date: 20140702
  Transmission Date: 20150326
  Serious: Yes (Hospitalization)
  Sender: FDA-Public Use
  Company Number: DE-ROCHE-1252099

PATIENT
  Age: 78 Year
  Sex: Female
  Weight: 76.2 kg

DRUGS (19)
  1. VEMURAFENIB [Suspect]
     Active Substance: VEMURAFENIB
     Indication: METASTATIC MALIGNANT MELANOMA
     Dosage: MOST RECENT DOSE PRIOR TO EVENT: 25/JUN/2013
     Route: 048
     Dates: start: 20130610
  2. DIGIMERCK [Concomitant]
     Active Substance: DIGITOXIN
     Indication: ATRIAL FIBRILLATION
     Dosage: SELECT IF ONGOING=YES
     Route: 048
     Dates: start: 20130629
  3. ATACAND [Concomitant]
     Active Substance: CANDESARTAN CILEXETIL
     Indication: HYPERTENSION
     Dosage: SELECT IF ONGOING=YES
     Route: 048
     Dates: start: 20130701
  4. LERCANIDIPINE [Concomitant]
     Active Substance: LERCANIDIPINE
     Indication: HYPERTENSION
     Dosage: SELECT IF ONGOING=YES
     Route: 048
  5. ADUMBRAN [Concomitant]
     Indication: INSOMNIA
     Dosage: AS NEEDED
     Route: 048
     Dates: start: 201305
  6. MARCUMAR [Concomitant]
     Active Substance: PHENPROCOUMON
     Indication: ATRIAL FIBRILLATION
     Route: 048
     Dates: start: 20130628
  7. NOVONORM [Concomitant]
     Active Substance: REPAGLINIDE
     Indication: DIABETES MELLITUS
     Dosage: SELECT IF ONGOING=YES
     Route: 048
     Dates: start: 1997
  8. VOTUM (GERMANY) [Concomitant]
     Active Substance: OLMESARTAN MEDOXOMIL
     Indication: HYPERTENSION
     Dosage: SELECT IF ONGOING=YES
     Route: 048
     Dates: start: 1992
  9. NEBIVOLOL [Concomitant]
     Active Substance: NEBIVOLOL
     Indication: HYPERTENSION
     Dosage: SELECT IF ONGOING=YES
     Route: 048
  10. ASPIRIN PROTECT [Concomitant]
     Active Substance: ASPIRIN
     Indication: HAEMODILUTION
     Dosage: SELECT IF ONGOING=YES
     Route: 048
  11. METFORMIN [Concomitant]
     Active Substance: METFORMIN HYDROCHLORIDE
     Indication: DIABETES MELLITUS
     Dosage: SELECT IF ONGOING=NO
     Route: 048
     Dates: start: 1997, end: 20130626
  12. PASPERTIN [Concomitant]
     Active Substance: METOCLOPRAMIDE HYDROCHLORIDE
     Indication: NAUSEA
     Dosage: SELECT IF ONGOING=YES
     Route: 048
     Dates: start: 20130617
  13. TOREM [Concomitant]
     Active Substance: TORSEMIDE
     Indication: HYPERTENSION
     Dosage: SELECT IF ONGOING=YES
     Route: 048
     Dates: start: 20130701
  14. ALLOPURINOL HEXAL [Concomitant]
     Indication: GOUT
     Dosage: SELECT IF ONGOING=YES
     Route: 048
  15. PLACEBO [Suspect]
     Active Substance: UNSPECIFIED INGREDIENT
     Indication: METASTATIC MALIGNANT MELANOMA
     Dosage: MOST RECENT DOSE PRIOR TO EVENT: 25/JUN/2013
     Route: 048
     Dates: start: 20130610
  16. ONGLYZA [Concomitant]
     Active Substance: SAXAGLIPTIN HYDROCHLORIDE
     Indication: DIABETES MELLITUS
     Dosage: SELECT IF ONGOING=YES
     Route: 048
     Dates: start: 1997
  17. LANTUS [Concomitant]
     Active Substance: INSULIN GLARGINE
     Indication: DIABETES MELLITUS
     Dosage: SELECT IF ONGOING=YES
     Route: 058
     Dates: start: 20130626
  18. DIGIMERCK [Concomitant]
     Active Substance: DIGITOXIN
     Indication: ELECTROCARDIOGRAM QT PROLONGED
  19. CIPROFLOXACIN. [Concomitant]
     Active Substance: CIPROFLOXACIN
     Indication: URINARY TRACT INFECTION
     Dosage: SELECT IF ONGOING=NO
     Route: 048
     Dates: start: 20130709, end: 20130712

REACTIONS (1)
  - Pleural effusion [Recovered/Resolved]

NARRATIVE: CASE EVENT DATE: 20130718
